FAERS Safety Report 9894128 (Version 2)
Quarter: 2014Q1

REPORT INFORMATION
  Report Type: Spontaneous
  Country: US (occurrence: US)
  Receive Date: 20140213
  Receipt Date: 20140218
  Transmission Date: 20141002
  Serious: No
  Sender: FDA-Public Use
  Company Number: US-PFIZER INC-2014037433

PATIENT
  Age: 62 Year
  Sex: Female
  Weight: 54.42 kg

DRUGS (3)
  1. PROTONIX [Suspect]
     Indication: GASTROOESOPHAGEAL REFLUX DISEASE
     Dosage: 40 MG, UNK
     Dates: start: 2012
  2. PROTONIX [Suspect]
     Indication: ABDOMINAL PAIN UPPER
     Dosage: 20 MG, UNK
  3. PROTONIX [Suspect]
     Dosage: UNKNOWN DOSE EVERY OTHER DAY

REACTIONS (6)
  - Bone density decreased [Unknown]
  - Drug withdrawal syndrome [Unknown]
  - Malaise [Unknown]
  - Productive cough [Unknown]
  - Oropharyngeal pain [Unknown]
  - Throat irritation [Unknown]
